FAERS Safety Report 6957032-9 (Version None)
Quarter: 2010Q3

REPORT INFORMATION
  Report Type: 
  Country: None (occurrence: None)
  Receive Date: 20100827
  Receipt Date: 20100827
  Transmission Date: 20110219
  Serious: Yes (Other)
  Sender: FDA-Public Use
  Company Number: None

PATIENT
  Age: 46 Year
  Sex: Female
  Weight: 96.1626 kg

DRUGS (9)
  1. MYCOPHENOLATE MOFETIL [Suspect]
     Indication: SCLERODERMA
     Dosage: 2 TABS BID PO
     Route: 048
     Dates: start: 20100801, end: 20100824
  2. MYCOPHENOLATE MOFETIL [Suspect]
     Indication: SYSTEMIC SCLEROSIS
     Dosage: 2 TABS BID PO
     Route: 048
     Dates: start: 20100801, end: 20100824
  3. HYDROCHLOROTHIAZIDE [Concomitant]
  4. LISINOPRIL [Concomitant]
  5. KAPIDEX [Suspect]
  6. ASPIRIN [Concomitant]
  7. REVATIO [Concomitant]
  8. VITAMIN E [Concomitant]
  9. AMITRIPTYLINE [Concomitant]

REACTIONS (5)
  - DIARRHOEA [None]
  - DRUG EFFECT DECREASED [None]
  - DYSPNOEA [None]
  - NAUSEA [None]
  - PRODUCT SUBSTITUTION ISSUE [None]
